FAERS Safety Report 10750723 (Version 1)
Quarter: 2015Q1

REPORT INFORMATION
  Report Type: Spontaneous
  Country: US (occurrence: None)
  Receive Date: 20150126
  Receipt Date: 20150126
  Transmission Date: 20150721
  Serious: Yes (Hospitalization)
  Sender: FDA-Public Use
  Company Number: A-NJ2014-105253

PATIENT
  Age: 38 Year
  Sex: Female

DRUGS (6)
  1. COUMADIN [Concomitant]
     Active Substance: WARFARIN SODIUM
  2. LASIX [Concomitant]
     Active Substance: FUROSEMIDE
  3. TYVASO (TREPROSTINIL SODIUM [Concomitant]
  4. TRACLEER [Suspect]
     Active Substance: BOSENTAN\BOSENTAN MONOHYDRATE
     Indication: PULMONARY ARTERIAL HYPERTENSION
     Route: 048
     Dates: end: 20140903
  5. REMODULIN [Suspect]
     Active Substance: TREPROSTINIL
     Indication: PULMONARY ARTERIAL HYPERTENSION
     Dosage: 10 NG/KG, PER MIN
     Dates: start: 2014
  6. SILDENAFIL. [Concomitant]
     Active Substance: SILDENAFIL

REACTIONS (3)
  - Fluid overload [None]
  - Dyspnoea [None]
  - Oedema [None]

NARRATIVE: CASE EVENT DATE: 20140903
